FAERS Safety Report 12745247 (Version 1)
Quarter: 2016Q3

REPORT INFORMATION
  Report Type: Report from Study
  Country: CA (occurrence: CA)
  Receive Date: 20160915
  Receipt Date: 20160915
  Transmission Date: 20161109
  Serious: Yes (Other)
  Sender: FDA-Public Use
  Company Number: CA-UCBSA-070574

PATIENT
  Age: 45 Year
  Sex: Male
  Weight: 127 kg

DRUGS (7)
  1. RALIVA [Concomitant]
     Indication: FIBROMYALGIA
     Dosage: 300 MG, ONCE DAILY (QD)
     Route: 048
  2. OXYNEO [Concomitant]
     Active Substance: OXYCODONE
     Indication: FIBROMYALGIA
     Dosage: 20 MG, ONCE DAILY (QD)
     Route: 048
  3. CERTOLIZUMAB PEGOL RA [Suspect]
     Active Substance: CERTOLIZUMAB PEGOL
     Indication: RHEUMATOID ARTHRITIS
     Dosage: 3 DOSES
     Route: 058
     Dates: start: 20121019, end: 20121116
  4. CERTOLIZUMAB PEGOL RA [Suspect]
     Active Substance: CERTOLIZUMAB PEGOL
     Dosage: 200 MG, EV 2 WEEKS(QOW)
     Route: 058
     Dates: start: 20121130
  5. GLYCOSIDE [Concomitant]
     Indication: DIABETES MELLITUS
     Dosage: 30 MG, ONCE DAILY (QD)
     Route: 048
  6. PLAQUENIL [Concomitant]
     Active Substance: HYDROXYCHLOROQUINE SULFATE
     Indication: RHEUMATOID ARTHRITIS
     Dosage: 200 MG, 2X/DAY (BID)
     Route: 048
     Dates: start: 2007
  7. ATENOLOL. [Concomitant]
     Active Substance: ATENOLOL
     Indication: HYPERTENSION
     Dosage: 15 MG, ONCE DAILY (QD)
     Route: 048

REACTIONS (5)
  - Paraesthesia [Not Recovered/Not Resolved]
  - Bone pain [Not Recovered/Not Resolved]
  - Pulmonary oedema [Recovering/Resolving]
  - Lower respiratory tract infection [Recovered/Resolved]
  - Carpal tunnel syndrome [Unknown]

NARRATIVE: CASE EVENT DATE: 20121029
